FAERS Safety Report 9932115 (Version 1)
Quarter: 2014Q1

REPORT INFORMATION
  Report Type: Spontaneous
  Country: US (occurrence: US)
  Receive Date: 20140228
  Receipt Date: 20140228
  Transmission Date: 20141002
  Serious: No
  Sender: FDA-Public Use
  Company Number: US-ABBVIE-14P-163-1194011-00

PATIENT
  Sex: Male

DRUGS (4)
  1. ANDROGEL [Suspect]
     Indication: HYPOGONADISM
     Dosage: PACKET
  2. ANDROGEL [Suspect]
     Dosage: 2 PUMPS DAILY
  3. ANDROGEL [Suspect]
     Dosage: 3 PUMPS DAILY
  4. TESTOSTERONE [Concomitant]
     Indication: HYPOGONADISM

REACTIONS (1)
  - Blood testosterone decreased [Unknown]
